FAERS Safety Report 5503691-7 (Version None)
Quarter: 2007Q4

REPORT INFORMATION
  Report Type: 
  Country: None (occurrence: None)
  Receive Date: 20071101
  Receipt Date: 20071022
  Transmission Date: 20080405
  Serious: Yes (Hospitalization)
  Sender: FDA-Public Use
  Company Number: BE-JNJFOC-20061000428

PATIENT
  Sex: Male

DRUGS (5)
  1. TMC114 [Suspect]
     Route: 048
  2. TMC114 [Suspect]
     Indication: HIV INFECTION
     Route: 048
  3. RITONAVIR [Suspect]
     Indication: HIV INFECTION
     Route: 048
  4. COMBIVIR [Concomitant]
     Indication: HIV INFECTION
     Route: 048
  5. VIREAD [Concomitant]
     Indication: HIV INFECTION
     Route: 048

REACTIONS (2)
  - PYREXIA [None]
  - THROMBOCYTOPENIA [None]
